FAERS Safety Report 15447849 (Version 1)
Quarter: 2018Q3

REPORT INFORMATION
  Report Type: Spontaneous
  Country: FR (occurrence: FR)
  Receive Date: 20180928
  Receipt Date: 20180928
  Transmission Date: 20181010
  Serious: Yes (Other)
  Sender: FDA-Public Use
  Company Number: FR-009507513-1809FRA008864

PATIENT
  Sex: Female

DRUGS (2)
  1. ROCEPHIN [Concomitant]
     Active Substance: CEFTRIAXONE SODIUM
  2. NORSET [Suspect]
     Active Substance: MIRTAZAPINE
     Dosage: 2 TABLETS PER DAY
     Route: 048
     Dates: start: 201503

REACTIONS (3)
  - Angioedema [Unknown]
  - Phlebitis [Unknown]
  - Ill-defined disorder [Unknown]
